FAERS Safety Report 5853456-1 (Version None)
Quarter: 2008Q3

REPORT INFORMATION
  Report Type: 
  Country: None (occurrence: None)
  Receive Date: 20080820
  Receipt Date: 20080811
  Transmission Date: 20090109
  Serious: Yes (Death, Hospitalization)
  Sender: FDA-Public Use
  Company Number: 2008-181896

PATIENT
  Sex: Female

DRUGS (1)
  1. FOLLISTIM AQ [Suspect]
     Indication: OVULATION INDUCTION

REACTIONS (7)
  - CAESAREAN SECTION [None]
  - ENTEROBACTER SEPSIS [None]
  - MATERNAL DRUGS AFFECTING FOETUS [None]
  - PREMATURE BABY [None]
  - SEPSIS NEONATAL [None]
  - SMALL FOR DATES BABY [None]
  - TWIN PREGNANCY [None]
